FAERS Safety Report 6553747-5 (Version None)
Quarter: 2010Q1

REPORT INFORMATION
  Report Type: 
  Country: None (occurrence: None)
  Receive Date: 20100125
  Receipt Date: 20100125
  Transmission Date: 20100710
  Serious: Yes (Life-Threatening)
  Sender: FDA-Public Use
  Company Number: None

PATIENT
  Sex: Female
  Weight: 55.9 kg

DRUGS (2)
  1. PRILOSEC OTC [Suspect]
     Indication: THERMAL BURN
     Dosage: ONCE/DAY ORAL
     Route: 048
  2. PLAVIX [Suspect]
     Indication: ARTERIOSCLEROSIS
     Dosage: 75 MG ONCE/DAY ORAL
     Route: 048

REACTIONS (3)
  - CAROTID ARTERIOSCLEROSIS [None]
  - CEREBROVASCULAR ACCIDENT [None]
  - DRUG PRESCRIBING ERROR [None]
